FAERS Safety Report 9402237 (Version 5)
Quarter: 2014Q2

REPORT INFORMATION
  Report Type: Spontaneous
  Country: US (occurrence: US)
  Receive Date: 20130716
  Receipt Date: 20140616
  Transmission Date: 20141212
  Serious: Yes (Hospitalization, Other)
  Sender: FDA-Public Use
  Company Number: US-BAYER-2013-073237

PATIENT
  Age: 65 Year
  Sex: Female
  Weight: 90 kg

DRUGS (23)
  1. BAYER ADVANCED ASPIRIN EXTRA STRENGTH [Suspect]
     Indication: ARTHRALGIA
     Dosage: 2 DF, PRN
     Route: 048
     Dates: start: 2012
  2. BAYER ADVANCED ASPIRIN EXTRA STRENGTH [Suspect]
     Indication: HEADACHE
  3. BAYER ADVANCED ASPIRIN EXTRA STRENGTH [Suspect]
     Indication: SINUS DISORDER
  4. COREG [Concomitant]
  5. BAYER ASPIRIN REGIMEN ADULT LOW STRENGTH [Concomitant]
     Indication: ISCHAEMIC HEART DISEASE PROPHYLAXIS
  6. AMLODIPINE BESYLATE [Concomitant]
  7. AMMONIUM LACTATE [Concomitant]
  8. AMOXICILLIN [Concomitant]
  9. AZITHROMYCIN [Concomitant]
  10. CHLORHEXIDINE [Concomitant]
  11. CIPROFLOXACIN [Concomitant]
  12. CLINDAMYCIN [Concomitant]
  13. DESONIDE [Concomitant]
  14. FLUTICASONE PROPIONATE [Concomitant]
  15. HYDROCODONE W/ACETAMINOPHEN [Concomitant]
  16. IBUPROFEN [Concomitant]
  17. KETOCONAZOLE [Concomitant]
  18. LIDOCAINE [Concomitant]
  19. LOSARTAN POTASSIUM [Concomitant]
  20. LOTEMAX [Concomitant]
  21. NEOMYCIN SULFATE/POLYMYXIN B SULFATE [Concomitant]
  22. RESTASIS [Concomitant]
  23. TOBRAMYCIN [Concomitant]

REACTIONS (6)
  - Chemical burn of gastrointestinal tract [Recovered/Resolved]
  - Hypoaesthesia oral [Not Recovered/Not Resolved]
  - Glossodynia [Not Recovered/Not Resolved]
  - Expired product administered [None]
  - Blood pressure increased [None]
  - Dysgeusia [Unknown]
